FAERS Safety Report 7372512-2 (Version None)
Quarter: 2011Q1

REPORT INFORMATION
  Report Type: 
  Country: None (occurrence: None)
  Receive Date: 20110316
  Receipt Date: 20110309
  Transmission Date: 20110831
  Serious: Yes (Other)
  Sender: FDA-Public Use
  Company Number: 201110227

PATIENT
  Sex: Male

DRUGS (1)
  1. LIORESAL [Suspect]
     Indication: MUSCLE SPASTICITY
     Dosage: 210 MCG, DAILY, INTRATHECAL
     Route: 037

REACTIONS (2)
  - IMPAIRED HEALING [None]
  - INCISION SITE COMPLICATION [None]
